FAERS Safety Report 12770065 (Version 1)
Quarter: 2016Q3

REPORT INFORMATION
  Report Type: Spontaneous
  Country: US (occurrence: US)
  Receive Date: 20160922
  Receipt Date: 20160922
  Transmission Date: 20161109
  Serious: Yes (Other)
  Sender: FDA-Public Use
  Company Number: US-TARO-2016TAR00768

PATIENT
  Age: 11 Month
  Sex: Male

DRUGS (1)
  1. CETIRIZINE HCL [Suspect]
     Active Substance: CETIRIZINE HYDROCHLORIDE
     Indication: HYPERSENSITIVITY
     Dosage: 2.5 ML, UNK

REACTIONS (4)
  - Balance disorder [Unknown]
  - Sleep disorder [Unknown]
  - Drug administered to patient of inappropriate age [Unknown]
  - Respiratory depth increased [Unknown]

NARRATIVE: CASE EVENT DATE: 20160912
